FAERS Safety Report 6254504-X (Version None)
Quarter: 2009Q3

REPORT INFORMATION
  Report Type: 
  Country: None (occurrence: None)
  Receive Date: 20090701
  Receipt Date: 20090701
  Transmission Date: 20100115
  Serious: Yes (Other)
  Sender: FDA-Public Use
  Company Number: None

PATIENT
  Age: 68 Year
  Sex: Female
  Weight: 108.8633 kg

DRUGS (1)
  1. CERTIRZINE HYDROCHLORIDE 10 MG EQUATE ALLERGY [Suspect]
     Indication: SINUS HEADACHE
     Dosage: 1 TABLET DAILY PO (ONCE)
     Route: 048

REACTIONS (4)
  - FEELING ABNORMAL [None]
  - FEELING DRUNK [None]
  - PRODUCT SUBSTITUTION ISSUE [None]
  - SPEECH DISORDER [None]
